FAERS Safety Report 5727551-1 (Version None)
Quarter: 2008Q2

REPORT INFORMATION
  Report Type: 
  Country: None (occurrence: None)
  Receive Date: 20080505
  Receipt Date: 20080421
  Transmission Date: 20081010
  Serious: Yes (Hospitalization)
  Sender: FDA-Public Use
  Company Number: TW-GENENTECH-259676

PATIENT
  Sex: Male
  Weight: 55 kg

DRUGS (1)
  1. RANIBIZUMAB [Suspect]
     Indication: CHOROIDAL NEOVASCULARISATION
     Dosage: 0.5 MG, 1/MONTH
     Route: 031
     Dates: start: 20071008

REACTIONS (1)
  - ENDOPHTHALMITIS [None]
